FAERS Safety Report 9019862 (Version 2)
Quarter: 2013Q1

REPORT INFORMATION
  Report Type: Spontaneous
  Country: CA (occurrence: CA)
  Receive Date: 20130118
  Receipt Date: 20130326
  Transmission Date: 20140127
  Serious: Yes (Disabling)
  Sender: FDA-Public Use
  Company Number: CA-SANOFI-AVENTIS-2013SA002263

PATIENT
  Age: 81 Year
  Sex: Male

DRUGS (15)
  1. ELIGARD [Suspect]
     Indication: PROSTATE CANCER
     Route: 058
     Dates: start: 20130104, end: 20130104
  2. CASODEX [Concomitant]
     Dosage: LONG TIME
  3. SENNOSIDE A [Concomitant]
     Dosage: LONG TIME
  4. LYRICA [Concomitant]
     Dosage: LONG TIME
  5. SOFLAX [Concomitant]
     Dosage: LONG TIME
  6. HYDROCHLOROTHIAZIDE [Concomitant]
     Dosage: LONG TIME
  7. FOLIC ACID [Concomitant]
     Dosage: LONG TIME
  8. FINASTERIDE [Concomitant]
     Dosage: LONG TIME
  9. ESCITALOPRAM [Concomitant]
     Dosage: LONG TIME
  10. PREDNISONE [Concomitant]
     Dosage: LONG TIME
  11. PANTOPRAZOLE [Concomitant]
     Dosage: LONG TIME
  12. ACCUPRIL [Concomitant]
     Dosage: LONG TIME
  13. FERROUS GLUCONATE [Concomitant]
     Dosage: LONG TIME
  14. EZETROL [Concomitant]
     Dosage: LONG TIME
  15. OXYCODONE [Concomitant]
     Dosage: LONG TIME

REACTIONS (3)
  - Confusional state [Recovered/Resolved]
  - Disorientation [Recovered/Resolved]
  - Insomnia [Recovered/Resolved]
